FAERS Safety Report 17632730 (Version 1)
Quarter: 2020Q2

REPORT INFORMATION
  Report Type: Spontaneous
  Country: US (occurrence: US)
  Receive Date: 20200406
  Receipt Date: 20200406
  Transmission Date: 20200713
  Serious: No
  Sender: FDA-Public Use
  Company Number: US-BRECKENRIDGE PHARMACEUTICAL, INC.-2082397

PATIENT
  Age: 52 Year
  Sex: Female
  Weight: 80.91 kg

DRUGS (1)
  1. ALPRAZOLAM. [Suspect]
     Active Substance: ALPRAZOLAM
     Indication: ANXIETY
     Route: 048

REACTIONS (5)
  - Vertigo [None]
  - Product substitution issue [None]
  - Headache [None]
  - Muscle spasms [None]
  - Dizziness [None]
